FAERS Safety Report 13530479 (Version 11)
Quarter: 2018Q1

REPORT INFORMATION
  Report Type: Spontaneous
  Country: CA (occurrence: CA)
  Receive Date: 20170510
  Receipt Date: 20180222
  Transmission Date: 20180508
  Serious: Yes (Hospitalization, Other)
  Sender: FDA-Public Use
  Company Number: CA-ROCHE-1931363

PATIENT
  Age: 33 Year
  Sex: Female

DRUGS (13)
  1. XOLAIR [Suspect]
     Active Substance: OMALIZUMAB
     Indication: ASTHMA
     Route: 058
     Dates: start: 20170405
  2. XOLAIR [Suspect]
     Active Substance: OMALIZUMAB
     Route: 058
     Dates: start: 20170505
  3. XOLAIR [Suspect]
     Active Substance: OMALIZUMAB
     Route: 058
     Dates: start: 20170628
  4. AXERT [Concomitant]
     Active Substance: ALMOTRIPTAN MALATE
     Indication: MIGRAINE
     Route: 048
     Dates: start: 20080101
  5. SYMBICORT [Concomitant]
     Active Substance: BUDESONIDE\FORMOTEROL FUMARATE DIHYDRATE
     Indication: ASTHMA
     Route: 055
     Dates: start: 20160815
  6. RANITIDINE. [Concomitant]
     Active Substance: RANITIDINE
     Indication: HYPERSENSITIVITY
     Route: 048
     Dates: start: 20160815
  7. DICETEL [Concomitant]
     Active Substance: PINAVERIUM BROMIDE
     Indication: IRRITABLE BOWEL SYNDROME
     Route: 048
     Dates: start: 20010101
  8. XOLAIR [Suspect]
     Active Substance: OMALIZUMAB
     Route: 058
     Dates: start: 20170906
  9. PRAXIS (ARGENTINA) [Concomitant]
     Indication: HYPERSENSITIVITY
     Route: 048
     Dates: start: 20160815
  10. FLOVENT [Concomitant]
     Active Substance: FLUTICASONE PROPIONATE
     Indication: ASTHMA
     Route: 055
     Dates: start: 20060101, end: 20160815
  11. XOLAIR [Suspect]
     Active Substance: OMALIZUMAB
     Route: 058
     Dates: start: 20170530
  12. PREDNISONE. [Concomitant]
     Active Substance: PREDNISONE
     Indication: ASTHMA
     Route: 048
     Dates: start: 20160701
  13. XOLAIR [Suspect]
     Active Substance: OMALIZUMAB
     Route: 058
     Dates: start: 20170804

REACTIONS (27)
  - Hyperhidrosis [Recovered/Resolved]
  - Fatigue [Recovered/Resolved]
  - Dysphonia [Unknown]
  - Hypersensitivity [Unknown]
  - Urticaria [Unknown]
  - Pruritus [Not Recovered/Not Resolved]
  - Vertigo [Recovering/Resolving]
  - Headache [Unknown]
  - Lip swelling [Unknown]
  - Food allergy [Unknown]
  - Rhinitis [Recovered/Resolved]
  - Anaphylactic reaction [Unknown]
  - Pain in extremity [Unknown]
  - Dyspnoea [Unknown]
  - Wheezing [Unknown]
  - Asthma [Recovered/Resolved]
  - Mast cell activation syndrome [Unknown]
  - Nausea [Unknown]
  - Rash [Recovered/Resolved]
  - Tachycardia [Recovering/Resolving]
  - Angioedema [Unknown]
  - Anxiety [Unknown]
  - Blood pressure increased [Unknown]
  - Injury [Unknown]
  - Swelling face [Unknown]
  - Influenza like illness [Unknown]
  - Pain [Recovered/Resolved]

NARRATIVE: CASE EVENT DATE: 20170405
